FAERS Safety Report 13282291 (Version 2)
Quarter: 2017Q2

REPORT INFORMATION
  Report Type: Report from Study
  Country: US (occurrence: US)
  Receive Date: 20170301
  Receipt Date: 20170410
  Transmission Date: 20170830
  Serious: Yes (Other)
  Sender: FDA-Public Use
  Company Number: PHEH2017US006046

PATIENT
  Sex: Male
  Weight: 59 kg

DRUGS (3)
  1. HYPERTONIC SALINE SOLUTION [Concomitant]
     Active Substance: SODIUM CHLORIDE
     Indication: PRODUCT USED FOR UNKNOWN INDICATION
     Dosage: UNK
     Route: 055
  2. TOBI [Suspect]
     Active Substance: TOBRAMYCIN
     Indication: LUNG INFECTION PSEUDOMONAL
     Dosage: UNK
     Route: 065
  3. TOBI [Suspect]
     Active Substance: TOBRAMYCIN
     Dosage: 300 MG, BID 28 DAYS ON 28 DAYS OFF
     Route: 055
     Dates: start: 2014

REACTIONS (15)
  - Rhonchi [Unknown]
  - Seizure [Unknown]
  - Tracheomalacia [Unknown]
  - Choking [Unknown]
  - Drug intolerance [Unknown]
  - Cough [Unknown]
  - Upper airway obstruction [Unknown]
  - Retching [Unknown]
  - Sputum discoloured [Unknown]
  - Productive cough [Unknown]
  - Bronchial secretion retention [Unknown]
  - Streptococcal infection [Unknown]
  - Nasal congestion [Unknown]
  - Tracheal haemorrhage [Unknown]
  - Pneumonia [Unknown]
